FAERS Safety Report 9158086 (Version 2)
Quarter: 2013Q1

REPORT INFORMATION
  Report Type: Report from Study
  Country: US (occurrence: US)
  Receive Date: 20130312
  Receipt Date: 20130315
  Transmission Date: 20140127
  Serious: Yes (Hospitalization)
  Sender: FDA-Public Use
  Company Number: US-ROCHE-1199874

PATIENT
  Age: 34 Year
  Sex: Male

DRUGS (4)
  1. VEMURAFENIB [Suspect]
     Indication: MALIGNANT MELANOMA
     Route: 048
     Dates: start: 20130223
  2. VEMURAFENIB [Suspect]
     Route: 048
     Dates: start: 20130304
  3. POLYETHYLENE GLYCOL [Concomitant]
  4. SENOKOT-S [Concomitant]

REACTIONS (1)
  - Pancreatitis [Recovered/Resolved]
